FAERS Safety Report 9599089 (Version 1)
Quarter: 2013Q4

REPORT INFORMATION
  Report Type: Spontaneous
  Country: US (occurrence: US)
  Receive Date: 20131004
  Receipt Date: 20131004
  Transmission Date: 20140711
  Serious: No
  Sender: FDA-Public Use
  Company Number: US-AMGEN-USASP2013027158

PATIENT
  Age: 50 Year
  Sex: Female
  Weight: 99.77 kg

DRUGS (16)
  1. ENBREL [Suspect]
     Indication: PRODUCT USED FOR UNKNOWN INDICATION
     Dosage: 50 MG, QWK
     Route: 058
     Dates: start: 2006, end: 201303
  2. VOLTAREN                           /00372301/ [Concomitant]
     Dosage: 25 MG EC, UNK
  3. ALLEGRA [Concomitant]
     Dosage: 30 MG, UNK
  4. LANTUS [Concomitant]
     Dosage: UNK
  5. LISINOPRIL [Concomitant]
     Dosage: 10 MG, UNK
  6. NOVOLOG [Concomitant]
     Dosage: 100 UNITS/ML (U-100)
  7. VITAMIN E                          /00110501/ [Concomitant]
     Dosage: 1000 UNIT, UNK
  8. LEVOTHYROXINE [Concomitant]
     Dosage: 100 MUG, UNK
  9. NIFEDIPINE [Concomitant]
     Dosage: 30 MG ER, UNK
  10. HYDROCHLOROTH [Concomitant]
     Dosage: 12.5 MG, UNK
  11. PREVACID [Concomitant]
     Dosage: 15 MG, UNK
  12. ESTRADIOL [Concomitant]
     Dosage: 0.06 MG, UNK
  13. MOBIC [Concomitant]
     Dosage: 7.5 MG, UNK
  14. SYMLINPEN [Concomitant]
     Dosage: 60 INJ 1000 MCG, UNK
  15. IRON [Concomitant]
     Dosage: UNK
  16. METFORMIN ER [Concomitant]
     Dosage: 1000 MG, UNK

REACTIONS (1)
  - Therapeutic response decreased [Unknown]
